FAERS Safety Report 11715426 (Version 6)
Quarter: 2016Q4

REPORT INFORMATION
  Report Type: Spontaneous
  Country: US (occurrence: US)
  Receive Date: 20151109
  Receipt Date: 20161026
  Transmission Date: 20170206
  Serious: Yes (Life-Threatening, Congenital Anomaly, Other)
  Sender: FDA-Public Use
  Company Number: PHEH2015US023063

PATIENT
  Sex: Female

DRUGS (3)
  1. ZOFRAN [Suspect]
     Active Substance: ONDANSETRON HYDROCHLORIDE
     Indication: FOETAL EXPOSURE DURING PREGNANCY
     Route: 064
  2. ONDANSETRON DR REDDY [Suspect]
     Active Substance: ONDANSETRON
     Indication: FOETAL EXPOSURE DURING PREGNANCY
     Dosage: MOTHER DOSE: 04 MG, PRN
     Route: 064
  3. ONDANSETRON HYDROCHLORIDE. [Suspect]
     Active Substance: ONDANSETRON HYDROCHLORIDE
     Indication: FOETAL EXPOSURE DURING PREGNANCY
     Route: 064

REACTIONS (17)
  - Sinusitis bacterial [Unknown]
  - Pain [Unknown]
  - Heart disease congenital [Unknown]
  - Congenital anomaly [Unknown]
  - Craniosynostosis [Unknown]
  - Foetal exposure during pregnancy [Unknown]
  - Bronchitis [Unknown]
  - Atypical pneumonia [Unknown]
  - Anhedonia [Unknown]
  - Injury [Unknown]
  - Ventricular septal defect [Unknown]
  - Pneumonia mycoplasmal [Unknown]
  - Otitis externa [Unknown]
  - Anxiety [Unknown]
  - Cardiac murmur [Unknown]
  - Otitis media [Unknown]
  - Emotional distress [Unknown]
